FAERS Safety Report 16699386 (Version 1)
Quarter: 2019Q3

REPORT INFORMATION
  Report Type: Spontaneous
  Country: HU (occurrence: HU)
  Receive Date: 20190813
  Receipt Date: 20190813
  Transmission Date: 20191004
  Serious: Yes (Other)
  Sender: FDA-Public Use
  Company Number: HU-ALLERGAN-1932531US

PATIENT
  Sex: Female

DRUGS (1)
  1. CITALOPRAM HYDROBROMIDE - BP [Suspect]
     Active Substance: CITALOPRAM HYDROBROMIDE
     Indication: DEPRESSION
     Dosage: UNK
     Route: 065

REACTIONS (17)
  - Insomnia [Recovering/Resolving]
  - Dyspnoea [Unknown]
  - Feeling guilty [Recovering/Resolving]
  - Mood altered [Recovered/Resolved]
  - Depression [Recovering/Resolving]
  - Anhedonia [Recovered/Resolved]
  - Palpitations [Unknown]
  - Weight decreased [Unknown]
  - Headache [Unknown]
  - Decreased interest [Unknown]
  - Decreased appetite [Recovering/Resolving]
  - Lethargy [Unknown]
  - Asthenia [Unknown]
  - Anxiety [Recovering/Resolving]
  - Fatigue [Unknown]
  - Impulsive behaviour [Unknown]
  - Disturbance in attention [Recovered/Resolved]
